FAERS Safety Report 6019785-6 (Version None)
Quarter: 2008Q4

REPORT INFORMATION
  Report Type: 
  Country: None (occurrence: None)
  Receive Date: 20081224
  Receipt Date: 20081218
  Transmission Date: 20090506
  Serious: Yes (Hospitalization)
  Sender: FDA-Public Use
  Company Number: GB-GENENTECH-274280

PATIENT
  Age: 76 Year
  Sex: Male

DRUGS (1)
  1. ACTIVASE [Suspect]
     Indication: MYOCARDIAL INFARCTION
     Dosage: UNK
     Route: 042

REACTIONS (3)
  - ANEURYSM RUPTURED [None]
  - HAEMATOMA [None]
  - PERIPHERAL ISCHAEMIA [None]
